FAERS Safety Report 21245172 (Version 2)
Quarter: 2022Q4

REPORT INFORMATION
  Report Type: Spontaneous
  Country: RU (occurrence: RU)
  Receive Date: 20220823
  Receipt Date: 20221005
  Transmission Date: 20230113
  Serious: Yes (Hospitalization)
  Sender: FDA-Public Use
  Company Number: RU-BEH-2022148763

PATIENT
  Age: 23 Year
  Sex: Male
  Weight: 69 kg

DRUGS (2)
  1. PRIVIGEN [Suspect]
     Active Substance: HUMAN IMMUNOGLOBULIN G
     Indication: Immunodeficiency common variable
     Dosage: 30000 MILLIGRAM, SINGLE
     Route: 042
     Dates: start: 20220811, end: 20220811
  2. DEXAMETHASONE [Concomitant]
     Active Substance: DEXAMETHASONE
     Indication: Premedication
     Dosage: 8 MILLIGRAM
     Route: 030

REACTIONS (4)
  - Sinus tachycardia [Recovered/Resolved]
  - Blood pressure systolic decreased [Recovered/Resolved]
  - Chills [Recovered/Resolved]
  - Pallor [Recovered/Resolved]

NARRATIVE: CASE EVENT DATE: 20220811
